FAERS Safety Report 7463827-8 (Version None)
Quarter: 2011Q2

REPORT INFORMATION
  Report Type: 
  Country: None (occurrence: None)
  Receive Date: 20110506
  Receipt Date: 20110503
  Transmission Date: 20111010
  Serious: Yes (Death, Hospitalization)
  Sender: FDA-Public Use
  Company Number: US-ACTELION-A-NJ2011-47032

PATIENT

DRUGS (7)
  1. AMBRISENTAN [Concomitant]
  2. EPOPROSTENOL SODIUM [Suspect]
     Indication: PULMONARY ARTERIAL HYPERTENSION
     Dosage: 16 NG/KG, PER MIN
     Route: 041
     Dates: start: 20110325, end: 20110421
  3. EPOPROSTENOL SODIUM [Suspect]
     Dosage: 21 NG/KG, PER MIN
     Route: 041
     Dates: start: 20110306
  4. SILDENAFIL [Concomitant]
  5. EPOPROSTENOL SODIUM [Suspect]
     Dosage: UNK
     Route: 041
     Dates: start: 20110201
  6. FLOLAN [Concomitant]
  7. COUMADIN [Concomitant]

REACTIONS (11)
  - RENAL FAILURE ACUTE [None]
  - DIARRHOEA [None]
  - RESPIRATORY ARREST [None]
  - HYPOTENSION [None]
  - PALPITATIONS [None]
  - CARDIAC FAILURE [None]
  - DIALYSIS [None]
  - NAUSEA [None]
  - CARDIAC ARREST [None]
  - CARDIAC TAMPONADE [None]
  - OEDEMA [None]
